FAERS Safety Report 22305686 (Version 1)
Quarter: 2023Q2

REPORT INFORMATION
  Report Type: Spontaneous
  Country: US (occurrence: US)
  Receive Date: 20230510
  Receipt Date: 20230510
  Transmission Date: 20230722
  Serious: Yes (Other)
  Sender: FDA-Public Use
  Company Number: US-PURDUE PHARMA-USA-2023-0301990

PATIENT
  Age: 73 Year
  Sex: Male

DRUGS (1)
  1. OXYCONTIN [Suspect]
     Active Substance: OXYCODONE HYDROCHLORIDE
     Indication: Product used for unknown indication
     Dosage: 1700 MILLIGRAM, DAILY
     Route: 048

REACTIONS (8)
  - Cataract [Unknown]
  - Tooth loss [Unknown]
  - Prescribed overdose [Unknown]
  - Drug dependence [Unknown]
  - Drug abuse [Unknown]
  - Oral infection [Unknown]
  - Tooth injury [Unknown]
  - Adverse drug reaction [Unknown]
